FAERS Safety Report 25685101 (Version 1)
Quarter: 2025Q3

REPORT INFORMATION
  Report Type: Spontaneous
  Country: EU (occurrence: EU)
  Receive Date: 20250815
  Receipt Date: 20250815
  Transmission Date: 20251021
  Serious: Yes (Death)
  Sender: MYLAN
  Company Number: None

PATIENT
  Age: 21 Year
  Sex: Female

DRUGS (12)
  1. TRAMADOL [Suspect]
     Active Substance: TRAMADOL
     Indication: Product used for unknown indication
  2. TRAMADOL [Suspect]
     Active Substance: TRAMADOL
     Route: 048
  3. TRAMADOL [Suspect]
     Active Substance: TRAMADOL
     Route: 048
  4. TRAMADOL [Suspect]
     Active Substance: TRAMADOL
  5. ACETAMINOPHEN [Suspect]
     Active Substance: ACETAMINOPHEN
     Indication: Product used for unknown indication
  6. ACETAMINOPHEN [Suspect]
     Active Substance: ACETAMINOPHEN
     Route: 048
  7. ACETAMINOPHEN [Suspect]
     Active Substance: ACETAMINOPHEN
     Route: 048
  8. ACETAMINOPHEN [Suspect]
     Active Substance: ACETAMINOPHEN
  9. CODEINE [Suspect]
     Active Substance: CODEINE
     Indication: Product used for unknown indication
  10. CODEINE [Suspect]
     Active Substance: CODEINE
     Route: 048
  11. CODEINE [Suspect]
     Active Substance: CODEINE
     Route: 048
  12. CODEINE [Suspect]
     Active Substance: CODEINE

REACTIONS (2)
  - Death [Fatal]
  - Poisoning deliberate [Fatal]

NARRATIVE: CASE EVENT DATE: 20230101
